FAERS Safety Report 7394202-2 (Version None)
Quarter: 2011Q2

REPORT INFORMATION
  Report Type: 
  Country: None (occurrence: None)
  Receive Date: 20110405
  Receipt Date: 20110323
  Transmission Date: 20111010
  Serious: Yes (Hospitalization)
  Sender: FDA-Public Use
  Company Number: ES-ELI_LILLY_AND_COMPANY-ES201103006723

PATIENT
  Sex: Female

DRUGS (10)
  1. FORTEO [Suspect]
     Indication: OSTEOPOROSIS
     Dosage: 20 UG, QD
     Route: 058
     Dates: start: 20090617
  2. ASPIRIN [Concomitant]
     Dosage: 1 A DAY
     Route: 048
  3. PANTOPRAZOLE SODIUM [Concomitant]
     Dosage: 1 A DAY
     Route: 048
  4. SPASMOCTYL [Concomitant]
     Dosage: 1 EVERY 8 H
     Route: 048
  5. MASTICAL [Concomitant]
     Dosage: 1 A DAY
     Route: 048
  6. OXYCONTIN [Concomitant]
     Dosage: 10 MG, BID
     Route: 048
  7. LYRICA [Concomitant]
     Dosage: 2 A DAY
     Route: 048
  8. SEGURIL [Concomitant]
     Indication: OEDEMA
     Dosage: IF NEEDED
     Route: 048
  9. OXYCONTIN [Concomitant]
     Dosage: 5 MG, QD
     Route: 048
  10. OXINORM [Concomitant]
     Dosage: 1 EVERY 6H
     Route: 048

REACTIONS (1)
  - URINARY TRACT INFECTION [None]
